FAERS Safety Report 8049271-3 (Version None)
Quarter: 2012Q1

REPORT INFORMATION
  Report Type: 
  Country: None (occurrence: None)
  Receive Date: 20120117
  Receipt Date: 20120105
  Transmission Date: 20120608
  Serious: Yes (Other)
  Sender: FDA-Public Use
  Company Number: DE-ELI_LILLY_AND_COMPANY-DE201201002411

PATIENT
  Age: 64 Year
  Sex: Female

DRUGS (8)
  1. CALCIUM [Concomitant]
     Dosage: UNK
  2. LORAZEPAM [Concomitant]
  3. POLYETHYLENE GLYCOL [Concomitant]
  4. ZYPREXA [Suspect]
     Indication: MENTAL DISORDER
     Dosage: 10 MG, UNK
     Route: 048
     Dates: start: 20100101
  5. HALOPERIDOL [Concomitant]
  6. VITAMIN D [Concomitant]
  7. TORSEMIDE [Concomitant]
  8. VALPROIC ACID [Concomitant]

REACTIONS (2)
  - GASTROINTESTINAL TUBE INSERTION [None]
  - AVERSION [None]
